FAERS Safety Report 6883265-6 (Version None)
Quarter: 2010Q3

REPORT INFORMATION
  Report Type: 
  Country: None (occurrence: None)
  Receive Date: 20100727
  Receipt Date: 20070524
  Transmission Date: 20110219
  Serious: Yes (Other)
  Sender: FDA-Public Use
  Company Number: US-PFIZER INC-2007041907

PATIENT

DRUGS (1)
  1. CELEBREX [Suspect]
     Dates: start: 20010223, end: 20040602

REACTIONS (1)
  - CEREBROVASCULAR ACCIDENT [None]
